FAERS Safety Report 9674718 (Version 1)
Quarter: 2013Q4

REPORT INFORMATION
  Report Type: Spontaneous
  Country: US (occurrence: US)
  Receive Date: 20131107
  Receipt Date: 20131107
  Transmission Date: 20140711
  Serious: No
  Sender: FDA-Public Use
  Company Number: US-ENDO PHARMACEUTICALS INC.-AMLO20120011

PATIENT
  Age: 52 Year
  Sex: Male

DRUGS (2)
  1. AMLODIPINE BESYLATE TABLETS 10MG [Suspect]
     Indication: HYPERTENSION
     Route: 048
  2. AMLODIPINE BESYLATE TABLETS 10MG [Suspect]
     Route: 048
     Dates: start: 2005

REACTIONS (4)
  - Coeliac disease [Not Recovered/Not Resolved]
  - Bladder operation [Recovered/Resolved]
  - Prostatic operation [Recovered/Resolved]
  - Therapeutic response unexpected [Not Recovered/Not Resolved]
